FAERS Safety Report 7066477-0 (Version None)
Quarter: 2010Q4

REPORT INFORMATION
  Report Type: 
  Country: None (occurrence: None)
  Receive Date: 20101027
  Receipt Date: 20100616
  Transmission Date: 20110411
  Serious: No
  Sender: FDA-Public Use
  Company Number: US-WYE-H15080410

PATIENT
  Sex: Female
  Weight: 52.66 kg

DRUGS (3)
  1. PREMPRO [Suspect]
     Indication: MENOPAUSAL SYMPTOMS
     Route: 048
     Dates: start: 19900101
  2. PREMPRO [Suspect]
     Dosage: 0.3/1.5
     Route: 048
  3. ADVIL [Concomitant]

REACTIONS (1)
  - ALOPECIA [None]
